FAERS Safety Report 7186610-X (Version None)
Quarter: 2010Q4

REPORT INFORMATION
  Report Type: 
  Country: None (occurrence: None)
  Receive Date: 20101222
  Receipt Date: 20101217
  Transmission Date: 20110411
  Serious: Yes (Hospitalization)
  Sender: FDA-Public Use
  Company Number: FR-PFIZER INC-2010174533

PATIENT
  Age: 67 Year
  Sex: Female

DRUGS (3)
  1. DOXORUBICIN HCL [Suspect]
     Indication: BONE SARCOMA
     Dosage: UNK
     Route: 041
     Dates: start: 20100712, end: 20100713
  2. CISPLATIN [Suspect]
     Indication: BONE SARCOMA
     Dosage: UNK
     Route: 041
     Dates: start: 20100603, end: 20100603
  3. HOLOXAN [Suspect]
     Indication: BONE SARCOMA
     Dosage: UNK
     Route: 041
     Dates: start: 20100712, end: 20100713

REACTIONS (4)
  - BONE MARROW FAILURE [None]
  - CARDIAC FAILURE [None]
  - INFECTION [None]
  - RENAL FAILURE [None]
